FAERS Safety Report 12675923 (Version 1)
Quarter: 2016Q3

REPORT INFORMATION
  Report Type: Spontaneous
  Country: None (occurrence: None)
  Receive Date: 20160822
  Receipt Date: 20160822
  Transmission Date: 20161109
  Serious: Yes (Hospitalization, Disabling)
  Sender: FDA-Public Use
  Company Number: None

PATIENT
  Age: 28 Year
  Sex: Male
  Weight: 65.77 kg

DRUGS (2)
  1. CIPROFLOXACIN. [Suspect]
     Active Substance: CIPROFLOXACIN
     Indication: EYE INFECTION
     Route: 048
     Dates: start: 20070503, end: 20071201
  2. CIPROFLOXACIN. [Suspect]
     Active Substance: CIPROFLOXACIN
     Indication: URINARY TRACT INFECTION
     Route: 048
     Dates: start: 20070503, end: 20071201

REACTIONS (22)
  - Thrombocytopenia [None]
  - Tendon rupture [None]
  - Musculoskeletal pain [None]
  - Paraesthesia [None]
  - Exostosis [None]
  - Skin burning sensation [None]
  - Bone disorder [None]
  - Weight decreased [None]
  - Impaired work ability [None]
  - Hypoaesthesia [None]
  - Erectile dysfunction [None]
  - Male genital atrophy [None]
  - Hallucination [None]
  - Epistaxis [None]
  - Muscular weakness [None]
  - Tendonitis [None]
  - Disturbance in attention [None]
  - Muscle atrophy [None]
  - Back pain [None]
  - Tendon disorder [None]
  - Bursitis [None]
  - Genital disorder male [None]

NARRATIVE: CASE EVENT DATE: 20070503
